FAERS Safety Report 9304325 (Version 1)
Quarter: 2013Q2

REPORT INFORMATION
  Report Type: Spontaneous
  Country: BG (occurrence: BG)
  Receive Date: 20130522
  Receipt Date: 20130522
  Transmission Date: 20140414
  Serious: Yes (Disabling, Other)
  Sender: FDA-Public Use
  Company Number: BG-ACTAVIS-2013-08910

PATIENT
  Age: 29 Year
  Sex: Male

DRUGS (4)
  1. RIFAMPICIN (UNKNOWN) [Suspect]
     Indication: PULMONARY TUBERCULOSIS
     Dosage: UNK
     Route: 065
  2. ISONIAZID (WATSON LABORATORIES) [Suspect]
     Indication: PULMONARY TUBERCULOSIS
     Dosage: UNK
     Route: 065
  3. PYRAZINAMIDE [Suspect]
     Indication: PULMONARY TUBERCULOSIS
     Dosage: UNK
     Route: 065
  4. ETHAMBUTOL [Suspect]
     Indication: PULMONARY TUBERCULOSIS
     Dosage: UNK
     Route: 065

REACTIONS (10)
  - Mitochondrial neurogastrointestinal encephalopathy [Not Recovered/Not Resolved]
  - Condition aggravated [Not Recovered/Not Resolved]
  - Cachexia [None]
  - Abdominal pain [None]
  - Muscle atrophy [None]
  - Anaemia [None]
  - Aspartate aminotransferase increased [None]
  - Blood alkaline phosphatase increased [None]
  - Blood creatine phosphokinase increased [None]
  - Demyelinating polyneuropathy [None]
